FAERS Safety Report 4698680-9 (Version None)
Quarter: 2005Q2

REPORT INFORMATION
  Report Type: 
  Country: None (occurrence: None)
  Receive Date: 20050622
  Receipt Date: 20050615
  Transmission Date: 20051028
  Serious: Yes (Hospitalization)
  Sender: FDA-Public Use
  Company Number: 200512503BCC

PATIENT
  Age: 86 Year
  Sex: Female
  Weight: 47.1741 kg

DRUGS (10)
  1. BAYER WOMEN'S CAPLETS (ACETYSALICYLIC ACID) [Suspect]
     Indication: MYOCARDIAL INFARCTION
     Dosage: 81MG, NI; ORAL
     Route: 048
     Dates: start: 19940101
  2. BAYER WOMEN'S CAPLETS (ACETYSALICYLIC ACID) [Suspect]
     Indication: PROPHYLAXIS
     Dosage: 81MG, NI; ORAL
     Route: 048
     Dates: start: 19940101
  3. POTASSIUM CHLORIDE [Concomitant]
  4. FUROSEMIDE [Concomitant]
  5. LISINOPRIL [Concomitant]
  6. COREG [Concomitant]
  7. VITAMIN NOS [Concomitant]
  8. CALCIUM GLUCONATE [Concomitant]
  9. LUTEIN [Concomitant]
  10. ASCORBIC ACID [Concomitant]

REACTIONS (2)
  - CARDIAC FAILURE CONGESTIVE [None]
  - MYOCARDIAL INFARCTION [None]
